FAERS Safety Report 11229739 (Version 2)
Quarter: 2015Q3

REPORT INFORMATION
  Report Type: Report from Study
  Country: DE (occurrence: DE)
  Receive Date: 20150630
  Receipt Date: 20150811
  Transmission Date: 20151125
  Serious: Yes (Hospitalization)
  Sender: FDA-Public Use
  Company Number: DE-ABBVIE-15P-062-1416515-00

PATIENT
  Age: 74 Year
  Sex: Male

DRUGS (3)
  1. STALEVO [Concomitant]
     Active Substance: CARBIDOPA\ENTACAPONE\LEVODOPA
     Indication: PRODUCT USED FOR UNKNOWN INDICATION
  2. SAFINAMIDE [Suspect]
     Active Substance: SAFINAMIDE
     Indication: PRODUCT USED FOR UNKNOWN INDICATION
     Route: 065
     Dates: start: 20150702
  3. DUODOPA [Suspect]
     Active Substance: CARBIDOPA\LEVODOPA
     Indication: PARKINSON^S DISEASE
     Dosage: MD 9ML, CRD 3.2ML/H, ED 2ML
     Route: 050
     Dates: start: 20130415

REACTIONS (4)
  - Akinesia [Recovering/Resolving]
  - Pleurothotonus [Not Recovered/Not Resolved]
  - Parkinson^s disease [Recovering/Resolving]
  - General physical health deterioration [Not Recovered/Not Resolved]

NARRATIVE: CASE EVENT DATE: 201506
